FAERS Safety Report 6414856-4 (Version None)
Quarter: 2009Q4

REPORT INFORMATION
  Report Type: 
  Country: None (occurrence: None)
  Receive Date: 20091026
  Receipt Date: 20081204
  Transmission Date: 20100525
  Serious: No
  Sender: FDA-Public Use
  Company Number: US-ABBOTT-08P-163-0490837-00

PATIENT
  Sex: Female
  Weight: 60.382 kg

DRUGS (4)
  1. LUPRON DEPOT [Suspect]
     Indication: ENDOMETRIOSIS
     Dates: start: 20040101
  2. LUPRON DEPOT [Suspect]
     Dates: start: 20081104
  3. NORETHISTERONE [Concomitant]
     Indication: PROPHYLAXIS
     Dates: start: 20081105
  4. NORETHISTERONE [Concomitant]
     Indication: RESORPTION BONE INCREASED

REACTIONS (3)
  - ABDOMINAL PAIN [None]
  - AFFECT LABILITY [None]
  - OSTEOPENIA [None]
